FAERS Safety Report 25080212 (Version 1)
Quarter: 2025Q1

REPORT INFORMATION
  Report Type: Spontaneous
  Country: JP (occurrence: JP)
  Receive Date: 20250314
  Receipt Date: 20250314
  Transmission Date: 20250408
  Serious: Yes (Death, Hospitalization, Other)
  Sender: ARDELYX
  Company Number: JP-ARDELYX-2025ARDX001540

PATIENT
  Age: 8 Decade
  Sex: Male

DRUGS (1)
  1. TENAPANOR HYDROCHLORIDE [Suspect]
     Active Substance: TENAPANOR HYDROCHLORIDE
     Indication: Product used for unknown indication
     Route: 048
     Dates: start: 20241210, end: 202412

REACTIONS (2)
  - Peritonitis [Fatal]
  - Diarrhoea [Unknown]

NARRATIVE: CASE EVENT DATE: 20241201
